FAERS Safety Report 4757458-8 (Version None)
Quarter: 2005Q3

REPORT INFORMATION
  Report Type: 
  Country: None (occurrence: None)
  Receive Date: 20050831
  Receipt Date: 20050825
  Transmission Date: 20060218
  Serious: Yes (Hospitalization)
  Sender: FDA-Public Use
  Company Number: FR-ROCHE-415330

PATIENT
  Age: 74 Year
  Sex: Male

DRUGS (6)
  1. LOXEN [Suspect]
     Indication: ESSENTIAL HYPERTENSION
     Route: 048
     Dates: start: 20050615, end: 20050627
  2. BROMAZEPAM [Concomitant]
  3. PARACETAMOL [Concomitant]
  4. PRAVASTATIN SODIUM [Concomitant]
  5. ESOMEPRAZOLE [Concomitant]
  6. ZOLPIDEM [Concomitant]

REACTIONS (1)
  - ACUTE GENERALISED EXANTHEMATOUS PUSTULOSIS [None]
